FAERS Safety Report 14183367 (Version 1)
Quarter: 2017Q4

REPORT INFORMATION
  Report Type: Spontaneous
  Country: US (occurrence: US)
  Receive Date: 20171113
  Receipt Date: 20171113
  Transmission Date: 20180321
  Serious: Yes (Hospitalization)
  Sender: FDA-Public Use
  Company Number: US-ORPHAN EUROPE-2033900

PATIENT
  Age: 24 Month
  Sex: Female

DRUGS (2)
  1. CYSTADANE [Suspect]
     Active Substance: BETAINE
     Indication: VITAMIN B12 DEFICIENCY
     Route: 048
     Dates: start: 20150719
  2. CYSTADANE [Suspect]
     Active Substance: BETAINE
     Route: 048

REACTIONS (2)
  - Drug dose omission [Recovered/Resolved]
  - Pneumonia [Recovered/Resolved]

NARRATIVE: CASE EVENT DATE: 201710
